FAERS Safety Report 7671690-5 (Version None)
Quarter: 2011Q3

REPORT INFORMATION
  Report Type: 
  Country: None (occurrence: None)
  Receive Date: 20110809
  Receipt Date: 20110804
  Transmission Date: 20111222
  Serious: Yes (Other)
  Sender: FDA-Public Use
  Company Number: CHPA2011US10407

PATIENT
  Sex: Female

DRUGS (1)
  1. TRANSDERM SCOP [Suspect]
     Indication: MOTION SICKNESS
     Dosage: 4 PATCHES, ONE AT A TIME
     Route: 062
     Dates: start: 20091001, end: 20091001

REACTIONS (8)
  - MEMORY IMPAIRMENT [None]
  - COGNITIVE DISORDER [None]
  - THIRST [None]
  - INCORRECT DOSE ADMINISTERED [None]
  - FEELING HOT [None]
  - CONSTIPATION [None]
  - FLUSHING [None]
  - DRY MOUTH [None]
